FAERS Safety Report 14300306 (Version 1)
Quarter: 2017Q4

REPORT INFORMATION
  Report Type: Spontaneous
  Country: US (occurrence: US)
  Receive Date: 20171219
  Receipt Date: 20171219
  Transmission Date: 20180321
  Serious: No
  Sender: FDA-Public Use
  Company Number: US-PFIZER INC-2017537012

PATIENT
  Sex: Male

DRUGS (3)
  1. NEURONTIN [Suspect]
     Active Substance: GABAPENTIN
     Indication: HEADACHE
     Dosage: 100 MG, DAILY
  2. NEURONTIN [Suspect]
     Active Substance: GABAPENTIN
     Dosage: DOSE HAS BEEN GRADUALLY INCREASED OVER THE YEARS
  3. NEURONTIN [Suspect]
     Active Substance: GABAPENTIN
     Dosage: 600 MG, 4X/DAY

REACTIONS (3)
  - Drug ineffective for unapproved indication [Unknown]
  - Prescribed overdose [Unknown]
  - Migraine [Unknown]

NARRATIVE: CASE EVENT DATE: 20171214
